FAERS Safety Report 9528370 (Version 1)
Quarter: 2013Q1

REPORT INFORMATION
  Report Type: Spontaneous
  Country: US (occurrence: None)
  Receive Date: 20130314
  Receipt Date: 20130314
  Transmission Date: 20140127
  Serious: No
  Sender: FDA-Public Use
  Company Number: 1301USA011045

PATIENT
  Age: 71 Year
  Sex: Male

DRUGS (3)
  1. VICTRELIS (BOCEPREVIR) CAPSULE, 200 MG [Suspect]
     Indication: CHRONIC HEPATITIS C
     Route: 048
  2. PEGINTRON [Suspect]
     Indication: CHRONIC HEPATITIS C
     Route: 058
  3. REBETOL CAPSULES 200MG [Suspect]
     Dosage: 600 MG, QAM, ORAL
     Route: 048

REACTIONS (1)
  - Amnesia [None]
